FAERS Safety Report 18716562 (Version 1)
Quarter: 2021Q1

REPORT INFORMATION
  Report Type: Spontaneous
  Country: US (occurrence: US)
  Receive Date: 20210108
  Receipt Date: 20210108
  Transmission Date: 20210419
  Serious: Yes (Hospitalization)
  Sender: FDA-Public Use
  Company Number: None

PATIENT
  Age: 67 Year
  Sex: Female

DRUGS (2)
  1. CINACALCET. [Suspect]
     Active Substance: CINACALCET
     Indication: CHRONIC KIDNEY DISEASE
     Route: 048
     Dates: start: 20190517
  2. NONE LISTED [Concomitant]

REACTIONS (2)
  - Product dose omission issue [None]
  - Hospitalisation [None]
